FAERS Safety Report 10227267 (Version 1)
Quarter: 2014Q2

REPORT INFORMATION
  Report Type: Spontaneous
  Country: IN (occurrence: None)
  Receive Date: 20140606
  Receipt Date: 20140606
  Transmission Date: 20141212
  Serious: Yes (Other)
  Sender: FDA-Public Use
  Company Number: FK201402145

PATIENT
  Age: 26 Year
  Sex: Male

DRUGS (3)
  1. CISPLATIN [Suspect]
     Indication: KERATINISING SQUAMOUS CELL CARCINOMA OF NASOPHARYNX
  2. FLUOROURACIL [Suspect]
     Indication: KERATINISING SQUAMOUS CELL CARCINOMA OF NASOPHARYNX
  3. VINCRISTINE [Suspect]
     Indication: KERATINISING SQUAMOUS CELL CARCINOMA OF NASOPHARYNX

REACTIONS (10)
  - Dry mouth [None]
  - Trismus [None]
  - Tooth hypoplasia [None]
  - Osteoradionecrosis [None]
  - Microgenia [None]
  - Dental caries [None]
  - Swelling face [None]
  - Salivary gland atrophy [None]
  - Fibrosis [None]
  - Fistula [None]
